FAERS Safety Report 10970716 (Version 1)
Quarter: 2015Q1

REPORT INFORMATION
  Report Type: Spontaneous
  Country: BR (occurrence: BR)
  Receive Date: 20150331
  Receipt Date: 20150331
  Transmission Date: 20150721
  Serious: Yes (Other)
  Sender: FDA-Public Use
  Company Number: BR-PFIZER INC-2014281666

PATIENT
  Age: 66 Year
  Sex: Male

DRUGS (1)
  1. SUTENT [Suspect]
     Active Substance: SUNITINIB MALATE
     Indication: GASTROINTESTINAL STROMAL TUMOUR
     Dosage: 50 MG, CYCLIC (1X1)
     Route: 048
     Dates: start: 20140428

REACTIONS (4)
  - Gastrointestinal stromal tumour [Unknown]
  - Drug intolerance [Unknown]
  - Deafness [Unknown]
  - Disease progression [Unknown]
